FAERS Safety Report 12224650 (Version 2)
Quarter: 2016Q2

REPORT INFORMATION
  Report Type: Spontaneous
  Country: US (occurrence: US)
  Receive Date: 20160331
  Receipt Date: 20160503
  Transmission Date: 20160815
  Serious: Yes (Hospitalization, Other)
  Sender: FDA-Public Use
  Company Number: US-AMGEN-USASP2016038254

PATIENT
  Age: 34 Year
  Sex: Female

DRUGS (1)
  1. ARANESP [Suspect]
     Active Substance: DARBEPOETIN ALFA
     Indication: CHRONIC KIDNEY DISEASE
     Dosage: 300 MUG, QWK
     Route: 065

REACTIONS (5)
  - Sickle cell anaemia with crisis [Unknown]
  - Aplasia pure red cell [Unknown]
  - Therapeutic response decreased [Unknown]
  - Peritoneal dialysis [Unknown]
  - Haemoglobin decreased [Unknown]
